FAERS Safety Report 4814985-2 (Version None)
Quarter: 2005Q4

REPORT INFORMATION
  Report Type: 
  Country: None (occurrence: None)
  Receive Date: 20051026
  Receipt Date: 20051014
  Transmission Date: 20060501
  Serious: Yes (Hospitalization)
  Sender: FDA-Public Use
  Company Number: 2005BI015836

PATIENT
  Age: 56 Year
  Sex: Female

DRUGS (5)
  1. AMEVIVE [Suspect]
     Indication: PSORIASIS
     Dosage: 15 MG; QW; IM
     Route: 030
     Dates: start: 20050629
  2. SYMMETREL [Concomitant]
  3. NAPROXEN [Concomitant]
  4. LIPITOR [Concomitant]
  5. ROBAXACET [Concomitant]

REACTIONS (1)
  - PNEUMONITIS [None]
